FAERS Safety Report 24181596 (Version 1)
Quarter: 2024Q3

REPORT INFORMATION
  Report Type: Spontaneous
  Country: US (occurrence: US)
  Receive Date: 20240807
  Receipt Date: 20240807
  Transmission Date: 20241016
  Serious: No
  Sender: ROCHE
  Company Number: US-ROCHE-10000049549

PATIENT

DRUGS (2)
  1. XOLAIR [Suspect]
     Active Substance: OMALIZUMAB
     Indication: Urticaria
     Route: 065
     Dates: start: 202405
  2. XOLAIR [Suspect]
     Active Substance: OMALIZUMAB
     Indication: Hypersensitivity

REACTIONS (3)
  - Nasopharyngitis [Unknown]
  - Alopecia [Unknown]
  - Abdominal pain [Unknown]
